FAERS Safety Report 10046906 (Version 1)
Quarter: 2014Q1

REPORT INFORMATION
  Report Type: Report from Study
  Country: CA (occurrence: CA)
  Receive Date: 20140331
  Receipt Date: 20140331
  Transmission Date: 20141002
  Serious: Yes (Hospitalization)
  Sender: FDA-Public Use
  Company Number: PHHY2014CA038144

PATIENT
  Sex: Male

DRUGS (8)
  1. CLOZARIL [Suspect]
     Indication: SCHIZOPHRENIA
     Dosage: 300 UKN, UNK
     Route: 048
     Dates: start: 20130912, end: 201403
  2. REMERON [Concomitant]
     Dosage: 30 UKN, QD (AT BEDTIME)
  3. ZYPREXA [Concomitant]
     Dosage: 15 UKN, QD (AT BEDTIME)
  4. EPIVAL [Concomitant]
     Dosage: 950 UKN, QD (AT BEDTIME)
  5. LIPITOR [Concomitant]
     Dosage: 20 UKN, DAILY
  6. THIAMINE [Concomitant]
     Dosage: 100 UKN, TID
  7. INVEGA SUSTENNA [Concomitant]
     Dosage: 100 UKN, DAILY (4 ADM)
  8. ATIVAN [Concomitant]
     Dosage: 0.5 UKN, BID

REACTIONS (1)
  - Blood test abnormal [Recovering/Resolving]
